FAERS Safety Report 8327078-7 (Version None)
Quarter: 2012Q2

REPORT INFORMATION
  Report Type: 
  Country: None (occurrence: None)
  Receive Date: 20120501
  Receipt Date: 20120203
  Transmission Date: 20120825
  Serious: Yes (Hospitalization)
  Sender: FDA-Public Use
  Company Number: US-SANOFI-AVENTIS-2012SA007673

PATIENT
  Sex: Male

DRUGS (1)
  1. APIDRA [Suspect]
     Route: 058
     Dates: start: 20110101, end: 20120202

REACTIONS (1)
  - BLOOD GLUCOSE INCREASED [None]
